FAERS Safety Report 5153819-6 (Version None)
Quarter: 2006Q4

REPORT INFORMATION
  Report Type: 
  Country: None (occurrence: None)
  Receive Date: 20061120
  Receipt Date: 20061030
  Transmission Date: 20070319
  Serious: Yes (Other)
  Sender: FDA-Public Use
  Company Number: 2006AC02021

PATIENT
  Age: 83 Year
  Sex: Female

DRUGS (5)
  1. MERONEM [Suspect]
     Route: 042
     Dates: start: 20060916, end: 20060920
  2. DEPAKENE [Interacting]
  3. LANOXIN [Concomitant]
     Route: 048
  4. EMCONCOR [Concomitant]
     Route: 048
  5. OMEPRAZOLE [Concomitant]
     Route: 048

REACTIONS (3)
  - DRUG EFFECT DECREASED [None]
  - DRUG INTERACTION [None]
  - EPILEPSY [None]
